FAERS Safety Report 8717130 (Version 3)
Quarter: 2012Q4

REPORT INFORMATION
  Report Type: Report from Study
  Country: AT (occurrence: AT)
  Receive Date: 20120810
  Receipt Date: 20120912
  Transmission Date: 20130627
  Serious: Yes (Hospitalization)
  Sender: FDA-Public Use
  Company Number: AT-BRISTOL-MYERS SQUIBB COMPANY-16837320

PATIENT
  Age: 65 Year
  Sex: Male

DRUGS (3)
  1. IPILIMUMAB [Suspect]
     Indication: METASTATIC MALIGNANT MELANOMA
     Dosage: No of cources:3
     Route: 042
     Dates: start: 20120601, end: 20120713
  2. HYDROCORTONE [Concomitant]
     Dates: start: 20120803
  3. ZOFRAN [Concomitant]
     Dates: start: 20120803, end: 20120803

REACTIONS (1)
  - Hypophysitis [Recovered/Resolved]
